FAERS Safety Report 7622407-1 (Version None)
Quarter: 2011Q3

REPORT INFORMATION
  Report Type: 
  Country: None (occurrence: None)
  Receive Date: 20110711
  Receipt Date: 20110630
  Transmission Date: 20111222
  Serious: Yes (Other)
  Sender: FDA-Public Use
  Company Number: WAES 1003USA00780

PATIENT
  Age: 65 Year
  Sex: Female

DRUGS (11)
  1. PLACEBO [Suspect]
     Indication: ACUTE CORONARY SYNDROME
     Dosage: PO
     Route: 048
     Dates: start: 20090701
  2. ISOSORBIDE MONONITRATE [Concomitant]
  3. ASPIRIN [Concomitant]
  4. HYDROXYUREA [Concomitant]
  5. QUININESO4 [Concomitant]
  6. PLACEBO [Suspect]
     Indication: ACUTE CORONARY SYNDROME
     Dosage: PO
     Route: 048
     Dates: start: 20090701
  7. RAMIPRIL [Concomitant]
  8. BISOPROLOL FUMARATE [Concomitant]
  9. LANSOPRAZOLE [Concomitant]
  10. WARFARIN SODIUM [Concomitant]
  11. VYTORIN [Suspect]
     Indication: ACUTE CORONARY SYNDROME
     Dosage: 10-40 MG, DAILY, PO
     Route: 048
     Dates: start: 20090701

REACTIONS (2)
  - MALIGNANT TUMOUR EXCISION [None]
  - SQUAMOUS CELL CARCINOMA [None]
